FAERS Safety Report 4798660-9 (Version None)
Quarter: 2005Q4

REPORT INFORMATION
  Report Type: 
  Country: None (occurrence: None)
  Receive Date: 20051014
  Receipt Date: 20051003
  Transmission Date: 20060501
  Serious: Yes (Hospitalization)
  Sender: FDA-Public Use
  Company Number: US-MERCK-0510USA02514

PATIENT
  Age: 58 Year
  Sex: Male
  Weight: 91 kg

DRUGS (9)
  1. VIOXX [Suspect]
     Indication: OVERWEIGHT
     Route: 048
     Dates: start: 20001130, end: 20040630
  2. AVAPRO [Concomitant]
     Route: 065
  3. VERAPAMIL [Concomitant]
     Route: 065
  4. ZOCOR [Concomitant]
     Route: 065
  5. SINGULAIR [Concomitant]
     Route: 065
  6. PROTONIX [Concomitant]
     Route: 065
  7. XALATAN [Concomitant]
     Route: 065
  8. AEROBID [Concomitant]
     Route: 065
  9. COMBIVENT [Concomitant]
     Route: 065

REACTIONS (6)
  - ABDOMINAL PAIN UPPER [None]
  - ASTHMA [None]
  - BACK PAIN [None]
  - CARDIAC DISORDER [None]
  - GASTROOESOPHAGEAL REFLUX DISEASE [None]
  - MYOCARDIAL INFARCTION [None]
